FAERS Safety Report 22113348 (Version 1)
Quarter: 2023Q1

REPORT INFORMATION
  Report Type: Spontaneous
  Country: None (occurrence: FR)
  Receive Date: 20230320
  Receipt Date: 20230320
  Transmission Date: 20230417
  Serious: Yes (Other)
  Sender: FDA-Public Use
  Company Number: FR-Fertin Pharma A/S-2139248

PATIENT
  Age: 15 Year
  Sex: Male

DRUGS (1)
  1. NICOTINE [Suspect]
     Active Substance: NICOTINE
     Route: 048

REACTIONS (5)
  - Tremor [Recovered/Resolved]
  - Vomiting [Recovered/Resolved]
  - Tobacco abuse [Recovered/Resolved]
  - Vertigo [Recovered/Resolved]
  - Off label use [Recovered/Resolved]

NARRATIVE: CASE EVENT DATE: 20221001
